FAERS Safety Report 15050196 (Version 2)
Quarter: 2018Q3

REPORT INFORMATION
  Report Type: Report from Study
  Country: None (occurrence: US)
  Receive Date: 20180622
  Receipt Date: 20180703
  Transmission Date: 20181010
  Serious: Yes (Other)
  Sender: FDA-Public Use
  Company Number: US-BAUSCH-BL-2018-017417

PATIENT
  Age: 76 Year
  Sex: Female

DRUGS (3)
  1. LACTULOSE. [Concomitant]
     Active Substance: LACTULOSE
     Indication: PRODUCT USED FOR UNKNOWN INDICATION
  2. XIFAXAN [Suspect]
     Active Substance: RIFAXIMIN
     Indication: ENCEPHALOPATHY
     Route: 048
     Dates: start: 201712
  3. XIFAXAN [Suspect]
     Active Substance: RIFAXIMIN
     Dosage: 4 TO 5 DAYS
     Route: 048
     Dates: start: 201806, end: 201806

REACTIONS (5)
  - Product supply issue [Not Recovered/Not Resolved]
  - Tremor [Unknown]
  - Upper limb fracture [Not Recovered/Not Resolved]
  - Fall [Unknown]
  - Treatment noncompliance [Recovered/Resolved]

NARRATIVE: CASE EVENT DATE: 20180412
